FAERS Safety Report 9778079 (Version 1)
Quarter: 2013Q4

REPORT INFORMATION
  Report Type: Report from Study
  Country: CA (occurrence: CA)
  Receive Date: 20131223
  Receipt Date: 20131223
  Transmission Date: 20140711
  Serious: Yes (Other)
  Sender: FDA-Public Use
  Company Number: CA-JNJFOC-20131211253

PATIENT
  Age: 44 Year
  Sex: Male
  Weight: 100.3 kg

DRUGS (2)
  1. REMICADE [Suspect]
     Indication: CROHN^S DISEASE
     Route: 042
     Dates: start: 20041029
  2. PAXIL [Concomitant]
     Route: 065

REACTIONS (1)
  - Blood potassium decreased [Recovering/Resolving]
